FAERS Safety Report 12543589 (Version 1)
Quarter: 2016Q3

REPORT INFORMATION
  Report Type: Spontaneous
  Country: US (occurrence: None)
  Receive Date: 20160708
  Receipt Date: 20160708
  Transmission Date: 20161109
  Serious: Yes (Hospitalization, Disabling)
  Sender: FDA-Public Use
  Company Number: None

PATIENT
  Age: 49 Year
  Sex: Female
  Weight: 63.05 kg

DRUGS (4)
  1. PROLIA [Suspect]
     Active Substance: DENOSUMAB
     Indication: OSTEOPOROSIS
     Dosage: 2X YEAR INTO THE MUSCLE
     Route: 030
     Dates: start: 20160308
  2. LEVOTHYROXINE. [Concomitant]
     Active Substance: LEVOTHYROXINE
  3. VITAMIN D/CALCIUM [Concomitant]
     Active Substance: CALCIUM\VITAMIN D
  4. MULTI VITAMIN [Concomitant]
     Active Substance: VITAMINS

REACTIONS (8)
  - Urinary tract infection [None]
  - Paraesthesia [None]
  - Myalgia [None]
  - Sensory disturbance [None]
  - Fall [None]
  - Muscle tightness [None]
  - Multiple sclerosis [None]
  - Poor peripheral circulation [None]

NARRATIVE: CASE EVENT DATE: 20160531
